FAERS Safety Report 7217316-6 (Version None)
Quarter: 2011Q1

REPORT INFORMATION
  Report Type: 
  Country: None (occurrence: None)
  Receive Date: 20110110
  Receipt Date: 20110105
  Transmission Date: 20110831
  Serious: Yes (Other)
  Sender: FDA-Public Use
  Company Number: CA-PFIZER INC-2010143951

PATIENT
  Age: 56 Year
  Sex: Female

DRUGS (2)
  1. TYLENOL [Concomitant]
     Dosage: 1 G, 4X/DAY
  2. TAZOCIN [Suspect]
     Dosage: UNK
     Route: 041
     Dates: start: 20100801

REACTIONS (6)
  - NAUSEA [None]
  - SERUM SICKNESS [None]
  - HERPES ZOSTER [None]
  - STREPTOCOCCAL INFECTION [None]
  - HOT FLUSH [None]
  - HYPERHIDROSIS [None]
